FAERS Safety Report 25268482 (Version 1)
Quarter: 2025Q2

REPORT INFORMATION
  Report Type: Spontaneous
  Country: US (occurrence: US)
  Receive Date: 20250505
  Receipt Date: 20250505
  Transmission Date: 20250717
  Serious: No
  Sender: PFIZER
  Company Number: US-PFIZER INC-202500092793

PATIENT
  Age: 69 Year
  Sex: Female

DRUGS (2)
  1. MORPHINE SULFATE [Suspect]
     Active Substance: MORPHINE SULFATE
  2. LOMOTIL [Concomitant]
     Active Substance: ATROPINE SULFATE\DIPHENOXYLATE HYDROCHLORIDE
     Indication: Diarrhoea
     Route: 048
     Dates: start: 20250420

REACTIONS (2)
  - Drug hypersensitivity [Unknown]
  - Urticaria [Unknown]
